FAERS Safety Report 8512596 (Version 2)
Quarter: 2013Q1

REPORT INFORMATION
  Report Type: Spontaneous
  Country: US (occurrence: US)
  Receive Date: 20120413
  Receipt Date: 20130311
  Transmission Date: 20140127
  Serious: Yes (Other)
  Sender: FDA-Public Use
  Company Number: US-ASTRAZENECA-2007UW14024

PATIENT
  Age: 86 Year
  Sex: Female
  Weight: 56.7 kg

DRUGS (15)
  1. NEXIUM [Suspect]
     Indication: GASTROOESOPHAGEAL REFLUX DISEASE
     Route: 048
  2. NEXIUM [Suspect]
     Indication: ERUCTATION
     Route: 048
  3. NEXIUM [Suspect]
     Indication: DYSPEPSIA
     Route: 048
  4. NEXIUM [Suspect]
     Indication: REGURGITATION
     Route: 048
  5. NEXIUM [Suspect]
     Indication: GASTROOESOPHAGEAL REFLUX DISEASE
     Route: 048
     Dates: start: 2008
  6. NEXIUM [Suspect]
     Indication: ERUCTATION
     Route: 048
     Dates: start: 2008
  7. NEXIUM [Suspect]
     Indication: DYSPEPSIA
     Route: 048
     Dates: start: 2008
  8. NEXIUM [Suspect]
     Indication: REGURGITATION
     Route: 048
     Dates: start: 2008
  9. ATENOLOL [Concomitant]
  10. FOSINOPRIL [Concomitant]
  11. ASPIRIN [Concomitant]
  12. ZETIA [Concomitant]
  13. CRESTOR [Concomitant]
     Route: 048
  14. MAALOX [Concomitant]
     Dosage: AS NEEDED
  15. UNKNOWN [Concomitant]

REACTIONS (15)
  - Hip fracture [Unknown]
  - Chills [Unknown]
  - Pyrexia [Unknown]
  - Blood pressure increased [Unknown]
  - Regurgitation [Unknown]
  - Dyspepsia [Unknown]
  - Sleep disorder due to general medical condition, insomnia type [Unknown]
  - Aphagia [Unknown]
  - General physical health deterioration [Unknown]
  - Diarrhoea [Unknown]
  - Vomiting [Unknown]
  - Malaise [Unknown]
  - Eructation [Unknown]
  - Drug dose omission [Unknown]
  - Drug ineffective [Unknown]
